FAERS Safety Report 16024482 (Version 2)
Quarter: 2019Q1

REPORT INFORMATION
  Report Type: Spontaneous
  Country: GB (occurrence: ES)
  Receive Date: 20190301
  Receipt Date: 20190313
  Transmission Date: 20190418
  Serious: Yes (Hospitalization)
  Sender: FDA-Public Use
  Company Number: ES-FRESENIUS KABI-FK201901985

PATIENT
  Age: 63 Year
  Sex: Female

DRUGS (1)
  1. PACLITAXEL 6MG/ML CONCENTRATE FOR SOLUTION FOR INFUSION [Suspect]
     Active Substance: PACLITAXEL
     Indication: PRODUCT USED FOR UNKNOWN INDICATION
     Route: 042
     Dates: start: 20180911, end: 20180911

REACTIONS (3)
  - Drug hypersensitivity [Recovered/Resolved]
  - Erythema [Recovered/Resolved]
  - Back pain [Recovered/Resolved]

NARRATIVE: CASE EVENT DATE: 20180911
